FAERS Safety Report 23763224 (Version 2)
Quarter: 2024Q2

REPORT INFORMATION
  Report Type: Spontaneous
  Country: GB (occurrence: GB)
  Receive Date: 20240419
  Receipt Date: 20240531
  Transmission Date: 20240716
  Serious: Yes (Other)
  Sender: FDA-Public Use
  Company Number: GB-002147023-NVSC2024GB083576

PATIENT
  Age: 50 Year
  Sex: Male
  Weight: 84 kg

DRUGS (1)
  1. GILENYA [Suspect]
     Active Substance: FINGOLIMOD HYDROCHLORIDE
     Indication: Secondary progressive multiple sclerosis
     Dosage: 0.25 MG (TABLETS)
     Route: 048
     Dates: end: 20231219

REACTIONS (9)
  - Secondary progressive multiple sclerosis [Recovering/Resolving]
  - Confusional state [Recovering/Resolving]
  - Dysarthria [Recovering/Resolving]
  - Dysphagia [Recovering/Resolving]
  - Coordination abnormal [Recovering/Resolving]
  - Rebound effect [Unknown]
  - Hypoaesthesia [Recovering/Resolving]
  - Paraesthesia [Recovering/Resolving]
  - Lymphopenia [Recovering/Resolving]

NARRATIVE: CASE EVENT DATE: 20231202
